FAERS Safety Report 21414700 (Version 2)
Quarter: 2023Q4

REPORT INFORMATION
  Report Type: Spontaneous
  Country: VN (occurrence: None)
  Receive Date: 20221006
  Receipt Date: 20231204
  Transmission Date: 20240110
  Serious: Yes (Other)
  Sender: FDA-Public Use
  Company Number: VN-ROCHE-3141069

PATIENT
  Age: 81 Year
  Sex: Male

DRUGS (13)
  1. POLIVY [Suspect]
     Active Substance: POLATUZUMAB VEDOTIN-PIIQ
     Indication: Double hit lymphoma
     Route: 042
     Dates: start: 20220623
  2. BENDAMUSTINE [Suspect]
     Active Substance: BENDAMUSTINE
     Indication: Double hit lymphoma
     Route: 042
     Dates: start: 20220623
  3. MABTHERA [Suspect]
     Active Substance: RITUXIMAB
     Indication: Double hit lymphoma
     Route: 042
     Dates: start: 20220623
  4. POLATUZUMAB VEDOTIN [Suspect]
     Active Substance: POLATUZUMAB VEDOTIN
     Indication: Double hit lymphoma
     Route: 065
  5. RITUXIMAB [Suspect]
     Active Substance: RITUXIMAB
     Indication: Double hit lymphoma
     Route: 065
  6. CYCLOPHOSPHAMIDE [Suspect]
     Active Substance: CYCLOPHOSPHAMIDE
     Indication: Double hit lymphoma
     Route: 065
  7. CYCLOPHOSPHAMIDE [Suspect]
     Active Substance: CYCLOPHOSPHAMIDE
     Route: 065
  8. VINCRISTINE [Suspect]
     Active Substance: VINCRISTINE
     Indication: Double hit lymphoma
     Route: 065
  9. VINCRISTINE [Suspect]
     Active Substance: VINCRISTINE
     Route: 065
  10. PREDNISOLONE [Suspect]
     Active Substance: PREDNISOLONE
     Indication: Double hit lymphoma
     Route: 065
  11. PREDNISOLONE [Suspect]
     Active Substance: PREDNISOLONE
     Route: 065
  12. DOXORUBICIN [Suspect]
     Active Substance: DOXORUBICIN
     Indication: Double hit lymphoma
     Route: 065
  13. DOXORUBICIN [Suspect]
     Active Substance: DOXORUBICIN
     Route: 065

REACTIONS (8)
  - Myelosuppression [Unknown]
  - Leukopenia [Not Recovered/Not Resolved]
  - Off label use [Unknown]
  - Neoplasm progression [Unknown]
  - Granulocytopenia [Unknown]
  - Pancytopenia [Unknown]
  - Aspiration bone marrow [Unknown]
  - Myelodysplastic syndrome [Unknown]
